FAERS Safety Report 9106074 (Version 3)
Quarter: 2013Q4

REPORT INFORMATION
  Report Type: Spontaneous
  Country: FR (occurrence: FR)
  Receive Date: 20130220
  Receipt Date: 20131015
  Transmission Date: 20140711
  Serious: Yes (Hospitalization)
  Sender: FDA-Public Use
  Company Number: FR-PFIZER INC-2013060824

PATIENT
  Age: 59 Year
  Sex: Male

DRUGS (6)
  1. LYRICA [Suspect]
     Dosage: UNK
     Route: 048
     Dates: start: 2008, end: 20130118
  2. ZANEXTRA [Suspect]
     Dosage: UNK
     Route: 048
     Dates: start: 2009, end: 20121227
  3. IXPRIM [Suspect]
     Dosage: UNK
     Route: 048
     Dates: end: 20130118
  4. URBANYL [Suspect]
     Dosage: 10 MG, 2X/DAY
     Route: 048
     Dates: end: 20130128
  5. URBANYL [Suspect]
     Dosage: DOSE DECREASED
     Route: 048
     Dates: start: 20130129, end: 2013
  6. ATENOLOL [Suspect]
     Dosage: UNK
     Route: 048
     Dates: end: 20130118

REACTIONS (1)
  - Mixed liver injury [Unknown]
